FAERS Safety Report 8880319 (Version 1)
Quarter: 2012Q4

REPORT INFORMATION
  Report Type: 
  Country: NL (occurrence: NL)
  Receive Date: 20121101
  Receipt Date: 20121101
  Transmission Date: 20130627
  Serious: Yes (Hospitalization)
  Sender: FDA-Public Use
  Company Number: PHHY2012NL097656

PATIENT

DRUGS (1)
  1. TOBRAMYCIN [Suspect]

REACTIONS (1)
  - Haemorrhage [Unknown]
